FAERS Safety Report 10747027 (Version 1)
Quarter: 2015Q1

REPORT INFORMATION
  Report Type: Spontaneous
  Country: FR (occurrence: FR)
  Receive Date: 20150129
  Receipt Date: 20150129
  Transmission Date: 20150721
  Serious: Yes (Hospitalization)
  Sender: FDA-Public Use
  Company Number: FR-ROCHE-1527867

PATIENT
  Age: 63 Year
  Sex: Female

DRUGS (10)
  1. DOLIPRANE [Concomitant]
     Active Substance: ACETAMINOPHEN
     Dosage: EVENING
     Route: 065
  2. THERALENE (FRANCE) [Concomitant]
     Active Substance: TRIMEPRAZINE
     Dosage: EVENING
     Route: 065
  3. NICOPATCH [Concomitant]
     Active Substance: NICOTINE
     Route: 065
  4. RIVOTRIL [Suspect]
     Active Substance: CLONAZEPAM
     Indication: PRODUCT USED FOR UNKNOWN INDICATION
     Route: 048
     Dates: start: 20141216, end: 20141216
  5. XEROQUEL [Concomitant]
     Active Substance: QUETIAPINE FUMARATE
     Dosage: EVENING
     Route: 065
  6. TERCIAN [Concomitant]
     Active Substance: CYAMEMAZINE
     Route: 065
     Dates: start: 20141214
  7. LARGACTIL [Concomitant]
     Active Substance: CHLORPROMAZINE
     Route: 065
     Dates: start: 20141214
  8. VALIUM [Suspect]
     Active Substance: DIAZEPAM
     Indication: PRODUCT USED FOR UNKNOWN INDICATION
     Route: 048
     Dates: start: 20141214, end: 20141216
  9. XEROQUEL [Concomitant]
     Active Substance: QUETIAPINE FUMARATE
     Dosage: BED TIME
     Route: 065
  10. AUGMENTIN [Concomitant]
     Active Substance: AMOXICILLIN\CLAVULANATE POTASSIUM

REACTIONS (1)
  - Coma [Recovered/Resolved]

NARRATIVE: CASE EVENT DATE: 20141216
